FAERS Safety Report 6248541-9 (Version None)
Quarter: 2009Q2

REPORT INFORMATION
  Report Type: 
  Country: None (occurrence: None)
  Receive Date: 20090629
  Receipt Date: 20090623
  Transmission Date: 20091009
  Serious: Yes (Hospitalization)
  Sender: FDA-Public Use
  Company Number: FR-BRISTOL-MYERS SQUIBB COMPANY-14680177

PATIENT
  Age: 63 Year
  Sex: Male

DRUGS (6)
  1. GLUCOPHAGE [Suspect]
     Indication: TYPE 2 DIABETES MELLITUS
  2. IZILOX [Suspect]
     Route: 048
     Dates: start: 20090325, end: 20090403
  3. TOPREC [Suspect]
     Route: 048
     Dates: start: 20090325, end: 20090403
  4. QUININE VITAMIN C GRAND [Suspect]
     Route: 048
     Dates: start: 20090325, end: 20090403
  5. AMARYL [Suspect]
     Indication: TYPE 2 DIABETES MELLITUS
  6. AMOXICILLIN TRIHYDRATE [Concomitant]
     Indication: SINUSITIS
     Dosage: STARTED 10 DAYS AGO

REACTIONS (1)
  - NEUTROPENIA [None]
